FAERS Safety Report 6050974-0 (Version None)
Quarter: 2009Q1

REPORT INFORMATION
  Report Type: 
  Country: None (occurrence: None)
  Receive Date: 20090122
  Receipt Date: 20090122
  Transmission Date: 20090719
  Serious: Yes (Life-Threatening, Hospitalization)
  Sender: FDA-Public Use
  Company Number: None

PATIENT
  Age: 49 Year
  Sex: Female
  Weight: 136 kg

DRUGS (9)
  1. SEROQUEL [Suspect]
     Indication: MENTAL DISORDER
     Dosage: 100 MG 1-3 TAB AT BEDTIME PO
     Route: 048
     Dates: start: 20081231
  2. EFFEXOR XR [Suspect]
     Indication: MENTAL DISORDER
     Dosage: 150 MG 2 CAPSULES DAILY PO
     Route: 048
  3. NEXIUM [Concomitant]
  4. LEVOXYL [Concomitant]
  5. KLONOPIN [Concomitant]
  6. LAMICTAL [Concomitant]
  7. TOPAMAX [Concomitant]
  8. VALTREX [Concomitant]
  9. FLAGYL [Concomitant]

REACTIONS (6)
  - BRADYCARDIA [None]
  - BRUGADA SYNDROME [None]
  - CONVULSION [None]
  - LOSS OF CONSCIOUSNESS [None]
  - TORSADE DE POINTES [None]
  - VENTRICULAR FIBRILLATION [None]
